FAERS Safety Report 19655731 (Version 1)
Quarter: 2021Q3

REPORT INFORMATION
  Report Type: Spontaneous
  Country: US (occurrence: US)
  Receive Date: 20210804
  Receipt Date: 20210804
  Transmission Date: 20211014
  Serious: Yes (Hospitalization)
  Sender: FDA-Public Use
  Company Number: US-STRIDES ARCOLAB LIMITED-2021SP005124

PATIENT
  Age: 85 Year
  Sex: Female

DRUGS (5)
  1. GABAPENTIN. [Suspect]
     Active Substance: GABAPENTIN
     Indication: PRODUCT USED FOR UNKNOWN INDICATION
     Dosage: UNK
     Route: 065
     Dates: end: 2020
  2. KETAMINE [Suspect]
     Active Substance: KETAMINE
     Dosage: 1MILLIGRAM/KILOGRAM PER HOUR
     Route: 065
     Dates: start: 2020, end: 2020
  3. KETAMINE [Suspect]
     Active Substance: KETAMINE
     Indication: EVIDENCE BASED TREATMENT
     Dosage: 0.5 MILLIGRAM/KILOGRAM PER HOUR
     Route: 065
     Dates: start: 2020, end: 2020
  4. KETAMINE [Suspect]
     Active Substance: KETAMINE
     Dosage: INFUSION RATE INCREASED TO 1.5 MG/KG/H AT 12 HRS ON SAME DAY
     Route: 065
     Dates: start: 2020, end: 2020
  5. DEXAMETHASONE. [Concomitant]
     Active Substance: DEXAMETHASONE
     Indication: SUBDURAL HAEMORRHAGE
     Dosage: UNK
     Route: 065
     Dates: start: 2020

REACTIONS (1)
  - Sedation complication [Recovered/Resolved]
